FAERS Safety Report 4430174-8 (Version None)
Quarter: 2004Q3

REPORT INFORMATION
  Report Type: 
  Country: None (occurrence: None)
  Receive Date: 20040817
  Receipt Date: 20040804
  Transmission Date: 20050211
  Serious: Yes (Life-Threatening)
  Sender: FDA-Public Use
  Company Number: 04H-144-0269878-00

PATIENT
  Age: 54 Year
  Sex: Male

DRUGS (3)
  1. HEPARIN SODIUM [Suspect]
     Indication: ANTICOAGULANT THERAPY
     Dosage: 5 MG/KG/DAY,  EXTRA-VENOUSLY
  2. STREPTOKINASE [Concomitant]
  3. ERYTHROCYTES [Concomitant]

REACTIONS (4)
  - HEPATIC RUPTURE [None]
  - HYPOVOLAEMIC SHOCK [None]
  - OLIGURIA [None]
  - PERITONEAL HAEMORRHAGE [None]
